FAERS Safety Report 6664712-1 (Version None)
Quarter: 2010Q1

REPORT INFORMATION
  Report Type: 
  Country: None (occurrence: None)
  Receive Date: 20100330
  Receipt Date: 20100201
  Transmission Date: 20100710
  Serious: Yes (Hospitalization)
  Sender: FDA-Public Use
  Company Number: 6057675

PATIENT
  Age: 39 Year
  Sex: Male

DRUGS (5)
  1. LEVOTHYROX 175(175 MICROGRAM, TABLET) (LEVOTHYROXINE SODIUM) [Suspect]
     Indication: THYROIDECTOMY
     Dosage: 1 DOSAGE FORMS, ORAL
     Route: 048
     Dates: start: 20080901
  2. LEXOMIL (12 MG,TABLET) (BROMAZEPAM) [Concomitant]
  3. PROPANOL - 1 (PROPRANOLOL) [Concomitant]
  4. RABEPRAZOLE SODIUM [Concomitant]
  5. UN-ALFA (ALFACLCIDOL) [Concomitant]

REACTIONS (1)
  - AGGRESSION [None]
